FAERS Safety Report 25166049 (Version 12)
Quarter: 2025Q3

REPORT INFORMATION
  Report Type: Report from Study
  Country: CA (occurrence: CA)
  Receive Date: 20250407
  Receipt Date: 20250825
  Transmission Date: 20251020
  Serious: Yes (Hospitalization, Other)
  Sender: CSL BEHRING
  Company Number: CA-BEH-2025200443

PATIENT
  Age: 79 Year
  Sex: Female
  Weight: 76.6 kg

DRUGS (21)
  1. HIZENTRA [Suspect]
     Active Substance: HUMAN IMMUNOGLOBULIN G
     Indication: Myasthenia gravis
     Dosage: 12 G, BIW
     Route: 058
     Dates: start: 20230111
  2. HIZENTRA [Suspect]
     Active Substance: HUMAN IMMUNOGLOBULIN G
     Dosage: 12 G, BIW
     Route: 058
     Dates: start: 20230111
  3. HIZENTRA [Suspect]
     Active Substance: HUMAN IMMUNOGLOBULIN G
     Dosage: 12 G, BIW
     Route: 058
     Dates: start: 20230111
  4. HIZENTRA [Suspect]
     Active Substance: HUMAN IMMUNOGLOBULIN G
     Route: 065
     Dates: start: 20250414
  5. HIZENTRA [Suspect]
     Active Substance: HUMAN IMMUNOGLOBULIN G
     Dosage: 12 G, BIW
     Route: 058
     Dates: start: 20230111
  6. HIZENTRA [Suspect]
     Active Substance: HUMAN IMMUNOGLOBULIN G
     Route: 058
     Dates: start: 20230111
  7. HIZENTRA [Suspect]
     Active Substance: HUMAN IMMUNOGLOBULIN G
     Route: 058
     Dates: start: 20230111
  8. HIZENTRA [Suspect]
     Active Substance: HUMAN IMMUNOGLOBULIN G
     Dosage: 24 G, QW
     Route: 058
     Dates: start: 20230111
  9. HIZENTRA [Suspect]
     Active Substance: HUMAN IMMUNOGLOBULIN G
     Route: 058
     Dates: start: 20230111
  10. HIZENTRA [Suspect]
     Active Substance: HUMAN IMMUNOGLOBULIN G
     Route: 058
     Dates: start: 20230111
  11. HIZENTRA [Suspect]
     Active Substance: HUMAN IMMUNOGLOBULIN G
     Dosage: 12 G, BIW
     Route: 058
  12. HIZENTRA [Suspect]
     Active Substance: HUMAN IMMUNOGLOBULIN G
     Route: 065
  13. PREDNISONE [Concomitant]
     Active Substance: PREDNISONE
     Indication: Product used for unknown indication
     Route: 065
  14. PANTOPRAZOLE [Concomitant]
     Active Substance: PANTOPRAZOLE
     Indication: Product used for unknown indication
     Route: 065
  15. NORVASC [Concomitant]
     Active Substance: AMLODIPINE BESYLATE
     Indication: Product used for unknown indication
     Route: 065
  16. EZETIMIBE [Concomitant]
     Active Substance: EZETIMIBE
  17. LEVOTHYROXINE [Concomitant]
     Active Substance: LEVOTHYROXINE
  18. RALOXIFENE [Concomitant]
     Active Substance: RALOXIFENE
  19. PERINDOPRIL [Concomitant]
     Active Substance: PERINDOPRIL
  20. MESTINON [Concomitant]
     Active Substance: PYRIDOSTIGMINE BROMIDE
  21. IMODIUM [Concomitant]
     Active Substance: LOPERAMIDE HYDROCHLORIDE
     Indication: Diarrhoea

REACTIONS (43)
  - Colitis [Unknown]
  - Haemorrhage [Unknown]
  - Abdominal pain [Unknown]
  - Scar [Unknown]
  - Gastrointestinal haemorrhage [Unknown]
  - General physical health deterioration [Unknown]
  - Visual impairment [Unknown]
  - Fine motor skill dysfunction [Unknown]
  - Varicose vein [Unknown]
  - Fear [Unknown]
  - Product use complaint [Unknown]
  - Herpes zoster [Unknown]
  - Macular degeneration [Unknown]
  - Disability [Unknown]
  - Condition aggravated [Unknown]
  - Varicose vein [Unknown]
  - Infusion site haemorrhage [Unknown]
  - Infusion site extravasation [Unknown]
  - Ligament rupture [Unknown]
  - Diarrhoea [Unknown]
  - Product use complaint [Unknown]
  - Visual impairment [Unknown]
  - Fine motor skill dysfunction [Unknown]
  - Blood pressure systolic increased [Unknown]
  - Arthritis [Unknown]
  - Drug ineffective for unapproved indication [Unknown]
  - Unevaluable event [Unknown]
  - Arthritis [Unknown]
  - Limb injury [Unknown]
  - Dizziness postural [Unknown]
  - Product availability issue [Unknown]
  - Product use complaint [Unknown]
  - Stress [Unknown]
  - Crying [Unknown]
  - Musculoskeletal discomfort [Unknown]
  - Product use complaint [Unknown]
  - Fall [Unknown]
  - Poor venous access [Unknown]
  - Needle issue [Unknown]
  - Off label use [Unknown]
  - Blood pressure systolic increased [Unknown]
  - Wrong technique in product usage process [Unknown]
  - Wrong technique in product usage process [Unknown]

NARRATIVE: CASE EVENT DATE: 20250722
